FAERS Safety Report 8258612-3 (Version None)
Quarter: 2012Q2

REPORT INFORMATION
  Report Type: 
  Country: None (occurrence: None)
  Receive Date: 20120404
  Receipt Date: 20120326
  Transmission Date: 20120825
  Serious: Yes (Other)
  Sender: FDA-Public Use
  Company Number: US-BRISTOL-MYERS SQUIBB COMPANY-16450157

PATIENT
  Age: 41 Year
  Sex: Female
  Weight: 94 kg

DRUGS (2)
  1. ONGLYZA [Suspect]
  2. METFORMIN HCL [Suspect]

REACTIONS (1)
  - HEPATITIS ACUTE [None]
